FAERS Safety Report 8504503-X (Version None)
Quarter: 2012Q3

REPORT INFORMATION
  Report Type: 
  Country: None (occurrence: None)
  Receive Date: 20120711
  Receipt Date: 20120702
  Transmission Date: 20120928
  Serious: Yes (Other)
  Sender: FDA-Public Use
  Company Number: US-ROCHE-1080283

PATIENT
  Sex: Female
  Weight: 69.7 kg

DRUGS (29)
  1. TAXOTERE [Concomitant]
  2. FULVESTRANT [Concomitant]
  3. CALCIUM [Concomitant]
     Indication: VITAMIN SUPPLEMENTATION
     Route: 048
     Dates: start: 20041020
  4. FLUOXETINE HYDROCHLORIDE [Concomitant]
     Route: 048
     Dates: start: 20091005
  5. HYDROCODONE BITARTRATE + ACETAMINOPHEN [Concomitant]
     Indication: PAIN
     Route: 048
     Dates: start: 20100920
  6. OMEPRAZOLE [Concomitant]
     Indication: ABDOMINAL DISCOMFORT
     Route: 048
  7. LAPATINIB [Concomitant]
  8. PROBIOTIC (UNK INGREDIENTS) [Concomitant]
     Route: 048
     Dates: start: 20040614
  9. ZOLPIDEM [Concomitant]
     Indication: INSOMNIA
     Route: 048
     Dates: start: 20040325
  10. CARBOPLATIN [Concomitant]
  11. ABRAXANE [Concomitant]
  12. VITAMIN B-12 [Concomitant]
     Route: 048
  13. ERIBULIN [Concomitant]
  14. DOCUSATE SODIUM [Concomitant]
     Indication: CONSTIPATION
     Route: 048
     Dates: start: 20090410
  15. EPIRUBICIN [Concomitant]
     Dates: start: 20040101
  16. DOCETAXEL [Concomitant]
     Dates: start: 20040101
  17. METHOTREXATE [Concomitant]
  18. IBUPROFEN [Concomitant]
     Route: 048
     Dates: start: 20051207
  19. ONDANSETRON [Concomitant]
     Indication: NAUSEA
     Route: 048
     Dates: start: 20040419
  20. CAPECITABINE [Concomitant]
     Indication: BREAST CANCER METASTATIC
     Route: 048
     Dates: start: 20120614
  21. FLUOROURACIL [Concomitant]
  22. ASPIRIN [Concomitant]
     Indication: PAIN
     Route: 048
  23. LOPERAMIDE HCL [Concomitant]
     Indication: DIARRHOEA
     Route: 048
     Dates: start: 20100118
  24. HERCEPTIN [Suspect]
     Indication: BREAST CANCER METASTATIC
     Route: 042
     Dates: start: 20051026, end: 20061220
  25. VINORELBINE [Concomitant]
  26. CYCLOPHOSPHAMIDE [Concomitant]
  27. VITAMIN D [Concomitant]
     Route: 048
     Dates: start: 20041020
  28. VITAMIN B6 [Concomitant]
     Route: 048
  29. ZOMETA [Concomitant]
     Indication: METASTASES TO BONE
     Route: 042
     Dates: start: 20100324

REACTIONS (3)
  - BLOOD ALKALINE PHOSPHATASE INCREASED [None]
  - ASPARTATE AMINOTRANSFERASE INCREASED [None]
  - ALANINE AMINOTRANSFERASE INCREASED [None]
